FAERS Safety Report 10447167 (Version 2)
Quarter: 2014Q4

REPORT INFORMATION
  Report Type: Spontaneous
  Country: US (occurrence: US)
  Receive Date: 20140911
  Receipt Date: 20141013
  Transmission Date: 20150528
  Serious: No
  Sender: FDA-Public Use
  Company Number: US-PFIZER INC-2014251156

PATIENT
  Age: 77 Year
  Sex: Female
  Weight: 66.67 kg

DRUGS (1)
  1. LYRICA [Suspect]
     Active Substance: PREGABALIN
     Dosage: UNK, 3X/DAY
     Dates: end: 201408

REACTIONS (12)
  - Product odour abnormal [Unknown]
  - Joint swelling [Not Recovered/Not Resolved]
  - Alopecia [Unknown]
  - Rash [Unknown]
  - Eye swelling [Not Recovered/Not Resolved]
  - Visual acuity reduced [Unknown]
  - Drug administration error [Unknown]
  - Dyspnoea [Not Recovered/Not Resolved]
  - Weight decreased [Not Recovered/Not Resolved]
  - Skin wrinkling [Unknown]
  - Peripheral swelling [Not Recovered/Not Resolved]
  - Skin disorder [Unknown]

NARRATIVE: CASE EVENT DATE: 201408
